FAERS Safety Report 4978814-9 (Version None)
Quarter: 2006Q2

REPORT INFORMATION
  Report Type: 
  Country: None (occurrence: None)
  Receive Date: 20060417
  Receipt Date: 20060406
  Transmission Date: 20061013
  Serious: Yes (Hospitalization)
  Sender: FDA-Public Use
  Company Number: 2006BI005257

PATIENT
  Age: 43 Year
  Sex: Female
  Weight: 81.6 kg

DRUGS (6)
  1. AMEVIVE [Suspect]
     Indication: PSORIASIS
     Dosage: IM
     Route: 030
     Dates: start: 20060220, end: 20060327
  2. CIPROFLOXACIN HCL [Concomitant]
  3. GABAPENTIN [Concomitant]
  4. HYDROXYZINE [Concomitant]
  5. HYDROMORPHONE HCL [Concomitant]
  6. CLOBETASOL CREAM [Concomitant]

REACTIONS (4)
  - CONDITION AGGRAVATED [None]
  - IMMOBILE [None]
  - PSORIASIS [None]
  - RASH PUSTULAR [None]
